FAERS Safety Report 18623666 (Version 1)
Quarter: 2020Q4

REPORT INFORMATION
  Report Type: Spontaneous
  Country: US (occurrence: US)
  Receive Date: 20201216
  Receipt Date: 20201216
  Transmission Date: 20210114
  Serious: Yes (Other)
  Sender: FDA-Public Use
  Company Number: US-PFIZER INC-2020159753

PATIENT
  Age: 68 Year
  Sex: Female
  Weight: 67.59 kg

DRUGS (1)
  1. METHOTREXATE SODIUM. [Suspect]
     Active Substance: METHOTREXATE SODIUM
     Dosage: UNK (INJECTION)

REACTIONS (2)
  - Extremity necrosis [Unknown]
  - Bacterial infection [Unknown]
